FAERS Safety Report 16989440 (Version 1)
Quarter: 2019Q4

REPORT INFORMATION
  Report Type: Spontaneous
  Country: CN (occurrence: CN)
  Receive Date: 20191104
  Receipt Date: 20191104
  Transmission Date: 20200122
  Serious: Yes (Life-Threatening, Other)
  Sender: FDA-Public Use
  Company Number: CN-PFIZER INC-2019472349

PATIENT
  Age: 6 Month
  Sex: Male
  Weight: 9 kg

DRUGS (2)
  1. ZITHROMAX [Suspect]
     Active Substance: AZITHROMYCIN DIHYDRATE
     Indication: CLEFT LIP
     Dosage: 0.125 G, 1X/DAY
     Route: 041
     Dates: start: 20191024, end: 20191027
  2. HEMOCOAGULASE [Concomitant]
     Indication: CLEFT LIP
     Dosage: 0.5 KIU, 1X/DAY
     Route: 040
     Dates: start: 20191024, end: 20191027

REACTIONS (5)
  - Shock [Recovering/Resolving]
  - Cyanosis [Recovering/Resolving]
  - Loss of consciousness [Recovering/Resolving]
  - Product use issue [Unknown]
  - Off label use [Unknown]

NARRATIVE: CASE EVENT DATE: 20191024
